FAERS Safety Report 8482059-8 (Version None)
Quarter: 2012Q3

REPORT INFORMATION
  Report Type: 
  Country: None (occurrence: None)
  Receive Date: 20120702
  Receipt Date: 20120628
  Transmission Date: 20120928
  Serious: Yes (Hospitalization)
  Sender: FDA-Public Use
  Company Number: PHHY2012FR055924

PATIENT
  Age: 79 Year
  Sex: Female
  Weight: 54 kg

DRUGS (3)
  1. COVERAM (PERINDOPRIL ARGININE/AMLODIPINE BESILATE) [Concomitant]
  2. ZOLEDRONOC ACID [Suspect]
     Dosage: UNK
     Route: 042
     Dates: start: 20120301
  3. FIXICAL [Concomitant]

REACTIONS (2)
  - NEPHROLITHIASIS [None]
  - AORTIC CALCIFICATION [None]
